FAERS Safety Report 19010806 (Version 1)
Quarter: 2021Q1

REPORT INFORMATION
  Report Type: Report from Study
  Country: JP (occurrence: JP)
  Receive Date: 20210316
  Receipt Date: 20210316
  Transmission Date: 20210420
  Serious: Yes (Death, Other)
  Sender: FDA-Public Use
  Company Number: JP-AUROBINDO-AUR-APL-2019-049471

PATIENT
  Age: 56 Year
  Sex: Male
  Weight: 73.4 kg

DRUGS (28)
  1. MABTHERA [Suspect]
     Active Substance: RITUXIMAB
     Indication: FOLLICLE CENTRE LYMPHOMA, FOLLICULAR GRADE I, II, III STAGE IV
     Dosage: 250 MILLIGRAM/SQ. METER, ONCE A DAY
     Route: 041
     Dates: start: 20100216
  2. MABTHERA [Suspect]
     Active Substance: RITUXIMAB
     Dosage: 250 MILLIGRAM/SQ. METER
     Route: 041
     Dates: start: 20100223, end: 20100223
  3. SAXIZON [Concomitant]
     Active Substance: HYDROCORTISONE SODIUM SUCCINATE
     Indication: PREMEDICATION
     Dosage: 100 MG, UNK
     Route: 042
     Dates: start: 20100216, end: 20100216
  4. GASCON [Concomitant]
     Active Substance: DIMETHICONE
     Dosage: UNK
     Route: 065
     Dates: start: 20100316
  5. RITUXIMAB. [Concomitant]
     Active Substance: RITUXIMAB
     Indication: FOLLICLE CENTRE LYMPHOMA, FOLLICULAR GRADE I, II, III STAGE IV
     Dosage: 250 MG/M2, UNK
     Route: 041
     Dates: start: 20100216, end: 20100216
  6. RITUXIMAB. [Concomitant]
     Active Substance: RITUXIMAB
     Dosage: 250 MG/M2, SINGLE
     Route: 041
     Dates: start: 20100223, end: 20100223
  7. LOXONIN [Concomitant]
     Active Substance: LOXOPROFEN SODIUM
     Dosage: 60 MILLIGRAM
     Route: 048
     Dates: start: 20100226, end: 2010
  8. CYTOTEC [Concomitant]
     Active Substance: MISOPROSTOL
     Indication: ULCER
     Dosage: 800 MG, UNK
     Route: 048
     Dates: start: 20100216
  9. ZEVALIN [Suspect]
     Active Substance: IBRITUMOMAB TIUXETAN
     Indication: FOLLICLE CENTRE LYMPHOMA, FOLLICULAR GRADE I, II, III STAGE IV
     Dosage: UNK
     Route: 065
     Dates: start: 20100216, end: 20100216
  10. LOXONIN [Concomitant]
     Active Substance: LOXOPROFEN SODIUM
     Indication: ABDOMINAL PAIN
     Dosage: 60 MG, UNK
     Route: 048
     Dates: start: 20100216, end: 20100216
  11. POLARAMINE [Concomitant]
     Active Substance: DEXCHLORPHENIRAMINE MALEATE
     Indication: PREMEDICATION
     Dosage: 5 MG, UNK
     Route: 042
     Dates: start: 20100216, end: 20100216
  12. ZEVALIN [Suspect]
     Active Substance: IBRITUMOMAB TIUXETAN
     Dosage: 815 MBQ, SINGLE
     Route: 042
     Dates: start: 20100223
  13. ALLEGRA [Concomitant]
     Active Substance: FEXOFENADINE HYDROCHLORIDE
     Indication: SEASONAL ALLERGY
     Dosage: 120 MG, UNK
     Route: 048
     Dates: start: 20100218
  14. LAXOBERON [Concomitant]
     Active Substance: SODIUM PICOSULFATE
     Indication: CONSTIPATION
     Dosage: 1, ONCE A DAY
     Route: 048
     Dates: start: 20100312
  15. MAGNESIUM OXIDE. [Concomitant]
     Active Substance: MAGNESIUM OXIDE
     Dosage: 150 MILLIGRAM, ONCE A DAY
     Route: 048
     Dates: start: 20100312, end: 20100316
  16. LOXONIN [Concomitant]
     Active Substance: LOXOPROFEN SODIUM
     Dosage: 1 UNK
     Route: 062
     Dates: start: 20100513
  17. VOLTAREN [Concomitant]
     Active Substance: DICLOFENAC SODIUM
     Indication: ABDOMINAL PAIN
     Route: 054
     Dates: start: 20100216
  18. LENDORMIN D [Concomitant]
     Active Substance: BROTIZOLAM
     Indication: INSOMNIA
     Dosage: 0.25 MILLIGRAM, ONCE A DAY
     Route: 048
     Dates: start: 20100216
  19. DIPHENHYDRAMINE LAURILSULFATE [Concomitant]
     Indication: XERODERMA
     Dosage: UNK
     Route: 061
     Dates: start: 20100216
  20. MAGNESIUM OXIDE. [Concomitant]
     Active Substance: MAGNESIUM OXIDE
     Indication: CONSTIPATION
     Dosage: 1 G, UNK
     Route: 048
     Dates: start: 20100312
  21. SAXIZON [Concomitant]
     Active Substance: HYDROCORTISONE SODIUM SUCCINATE
     Dosage: 100 MILLIGRAM
     Route: 042
     Dates: start: 20100223, end: 20100223
  22. PASTARON [Concomitant]
     Active Substance: UREA
     Indication: XERODERMA
     Dosage: UNK
     Route: 061
     Dates: start: 20100216
  23. MAGNESIUM OXIDE. [Concomitant]
     Active Substance: MAGNESIUM OXIDE
     Dosage: UNK
     Route: 065
     Dates: start: 20100316
  24. ZEVALIN [Suspect]
     Active Substance: IBRITUMOMAB TIUXETAN
     Indication: FOLLICLE CENTRE LYMPHOMA, FOLLICULAR GRADE I, II, III STAGE IV
     Dosage: 130 MBQ, SINGLE
     Route: 042
     Dates: start: 20100216, end: 20100216
  25. LOXONIN [Concomitant]
     Active Substance: LOXOPROFEN SODIUM
     Dosage: 60 MILLIGRAM
     Route: 048
     Dates: start: 20100223, end: 20100223
  26. POLARAMINE [Concomitant]
     Active Substance: DEXCHLORPHENIRAMINE MALEATE
     Dosage: 5 MILLIGRAM
     Route: 042
     Dates: start: 20100223, end: 20100223
  27. BIOFERMIN [Concomitant]
     Active Substance: DIETARY SUPPLEMENT\PROBIOTICS
     Indication: ENTEROCOLITIS
     Dosage: 3 G, UNK
     Route: 048
     Dates: start: 20100216
  28. GASCON [Concomitant]
     Active Substance: DIMETHICONE
     Indication: ENTEROCOLITIS
     Dosage: 120 MG, UNK
     Route: 048
     Dates: start: 20100312, end: 20100316

REACTIONS (6)
  - Neutrophil count decreased [Recovering/Resolving]
  - Disease progression [Fatal]
  - Thrombocytopenia [Recovered/Resolved]
  - Lymphocyte count decreased [Not Recovered/Not Resolved]
  - Upper respiratory tract inflammation [Recovered/Resolved]
  - Anaemia [Recovering/Resolving]

NARRATIVE: CASE EVENT DATE: 20100303
